FAERS Safety Report 9093205 (Version 3)
Quarter: 2020Q3

REPORT INFORMATION
  Report Type: Report from Study
  Country: JP (occurrence: JP)
  Receive Date: 20130201
  Receipt Date: 20130605
  Transmission Date: 20201105
  Serious: Yes (Hospitalization)
  Sender: FDA-Public Use
  Company Number: JP-ROCHE-1182032

PATIENT
  Age: 73 Year
  Sex: Female
  Weight: 60.3 kg

DRUGS (5)
  1. CALCICHEW D3 [Concomitant]
     Active Substance: CALCIUM\CHOLECALCIFEROL
     Indication: OSTEOPOROSIS
     Route: 048
     Dates: start: 20121116, end: 20130116
  2. IBANDRONIC ACID. [Suspect]
     Active Substance: IBANDRONIC ACID
     Indication: OSTEOPOROSIS
     Route: 048
  3. TEGRETOL [Concomitant]
     Active Substance: CARBAMAZEPINE
     Indication: TRIGEMINAL NEURALGIA
     Dosage: SINGLE USE
     Route: 048
     Dates: start: 20130102
  4. TEGRETOL [Concomitant]
     Active Substance: CARBAMAZEPINE
     Dosage: SINGLE USE
     Route: 065
     Dates: start: 20130125, end: 20130127
  5. TEGRETOL [Concomitant]
     Active Substance: CARBAMAZEPINE
     Dosage: SINGLE USE
     Route: 065
     Dates: start: 20130128, end: 20130203

REACTIONS (1)
  - Trigeminal neuralgia [Recovering/Resolving]

NARRATIVE: CASE EVENT DATE: 20130117
